FAERS Safety Report 20887477 (Version 1)
Quarter: 2022Q2

REPORT INFORMATION
  Report Type: Spontaneous
  Country: CN (occurrence: CN)
  Receive Date: 20220528
  Receipt Date: 20220528
  Transmission Date: 20220721
  Serious: Yes (Other)
  Sender: FDA-Public Use
  Company Number: None

PATIENT
  Age: 76 Year
  Sex: Female
  Weight: 55 kg

DRUGS (4)
  1. CYCLOPHOSPHAMIDE [Suspect]
     Active Substance: CYCLOPHOSPHAMIDE
     Indication: Breast cancer female
     Dosage: DOSAGE FORM- POWDER INJECTION, 0.9% SODIUM CHLORIDE (100 ML) + CYCLOPHOSPHAMIDE FOR (0.9 G)
     Route: 041
     Dates: start: 20220331, end: 20220331
  2. SODIUM CHLORIDE [Suspect]
     Active Substance: SODIUM CHLORIDE
     Indication: Medication dilution
     Dosage: DOSAGE FORM- INJECTION, 0.9% SODIUM CHLORIDE (100 ML) + CYCLOPHOSPHAMIDE FOR (0.9 G)
     Route: 041
     Dates: start: 20220331, end: 20220331
  3. DEXTROSE MONOHYDRATE [Suspect]
     Active Substance: DEXTROSE MONOHYDRATE
     Indication: Medication dilution
     Dosage: DOSAGE FORM- INJECTION, 5% GLUCOSE (250 ML) + DOXORUBICIN HYDROCHLORIDE LIPOSOME (40 MG)
     Route: 041
     Dates: start: 20220331, end: 20220331
  4. DOXORUBICIN HYDROCHLORIDE [Suspect]
     Active Substance: DOXORUBICIN HYDROCHLORIDE
     Indication: Breast cancer female
     Dosage: 5% GLUCOSE (250 ML) + DOXORUBICIN HYDROCHLORIDE LIPOSOME (40 MG)
     Route: 041
     Dates: start: 20220331, end: 20220331

REACTIONS (1)
  - Myelosuppression [Recovering/Resolving]

NARRATIVE: CASE EVENT DATE: 20220422
